FAERS Safety Report 7681566-5 (Version None)
Quarter: 2011Q3

REPORT INFORMATION
  Report Type: 
  Country: None (occurrence: None)
  Receive Date: 20110812
  Receipt Date: 20110810
  Transmission Date: 20111222
  Serious: Yes (Death, Other)
  Sender: FDA-Public Use
  Company Number: PHFR2010GB05402

PATIENT
  Sex: Male
  Weight: 148 kg

DRUGS (6)
  1. LORAZEPAM [Concomitant]
     Dosage: UNK DF, UNK
  2. BENZODIAZEPINES [Concomitant]
     Dosage: UNK DF, UNK
  3. CLOZAPINE [Suspect]
     Indication: SCHIZOPHRENIA
     Dosage: UNK UKN, UNK
     Route: 048
     Dates: start: 20100713
  4. DIAZEPAM [Concomitant]
     Route: 048
  5. HYOSCINE [Concomitant]
  6. METHADONE HCL [Concomitant]
     Dosage: 20-30  MG

REACTIONS (8)
  - PRODUCTIVE COUGH [None]
  - SELF-INJURIOUS IDEATION [None]
  - AGRANULOCYTOSIS [None]
  - AGITATION [None]
  - ANTIPSYCHOTIC DRUG LEVEL INCREASED [None]
  - AGGRESSION [None]
  - SEPSIS [None]
  - PNEUMONIA [None]
